FAERS Safety Report 15226502 (Version 2)
Quarter: 2018Q3

REPORT INFORMATION
  Report Type: Spontaneous
  Country: US (occurrence: US)
  Receive Date: 20180801
  Receipt Date: 20180910
  Transmission Date: 20181010
  Serious: No
  Sender: FDA-Public Use
  Company Number: US-SA-2018SA202774

PATIENT
  Age: 64 Year
  Sex: Male
  Weight: 79.37 kg

DRUGS (10)
  1. FISH OIL [Concomitant]
     Active Substance: FISH OIL
  2. ASPIRIN (E.C.) [Concomitant]
     Active Substance: ASPIRIN
  3. VITAMIN D3 [Concomitant]
     Active Substance: CHOLECALCIFEROL
  4. TURMERIC [CURCUMA LONGA] [Concomitant]
  5. GLUCOSAMINE CHONDROITIN [CHONDROITIN SULFATE SODIUM;GLUCOSAMINE] [Concomitant]
  6. AUBAGIO [Suspect]
     Active Substance: TERIFLUNOMIDE
     Indication: MULTIPLE SCLEROSIS
     Dosage: 14 MG, QD
     Route: 048
     Dates: start: 20180405, end: 201807
  7. BIOTIN [Concomitant]
     Active Substance: BIOTIN
  8. LEVOTHYROXINE SODIUM. [Concomitant]
     Active Substance: LEVOTHYROXINE SODIUM
  9. SILDENAFIL CITRATE. [Concomitant]
     Active Substance: SILDENAFIL CITRATE
  10. VITAMIN B12 [VITAMIN B12 NOS] [Concomitant]

REACTIONS (4)
  - Peripheral swelling [Recovered/Resolved]
  - Blood thyroid stimulating hormone decreased [Unknown]
  - Rash pruritic [Recovered/Resolved]
  - Acne [Recovered/Resolved]
